FAERS Safety Report 9865994 (Version 2)
Quarter: 2014Q1

REPORT INFORMATION
  Report Type: Spontaneous
  Country: US (occurrence: US)
  Receive Date: 20140203
  Receipt Date: 20140203
  Transmission Date: 20141002
  Serious: No
  Sender: FDA-Public Use
  Company Number: US-ALLERGAN-1314330US

PATIENT
  Age: 56 Year
  Sex: Female

DRUGS (3)
  1. RESTASIS [Suspect]
     Indication: DRY EYE
     Dosage: 2 GTT, UNK
     Route: 047
     Dates: start: 2005
  2. SYSTANE [Concomitant]
     Indication: DRY EYE
     Dosage: UNK
  3. REFRESH PM                         /01210201/ [Concomitant]
     Indication: DRY EYE
     Dosage: ONE APPLICATION
     Route: 047
     Dates: start: 20130914, end: 20130914

REACTIONS (4)
  - Eyelid oedema [Recovering/Resolving]
  - Foreign body sensation in eyes [Unknown]
  - Eye swelling [Recovering/Resolving]
  - Photophobia [Unknown]
